FAERS Safety Report 7247853-X (Version None)
Quarter: 2011Q1

REPORT INFORMATION
  Report Type: 
  Country: None (occurrence: None)
  Receive Date: 20110127
  Receipt Date: 20110124
  Transmission Date: 20110831
  Serious: No
  Sender: FDA-Public Use
  Company Number: US-PFIZER INC-2011017169

PATIENT
  Sex: Female

DRUGS (1)
  1. ZMAX [Suspect]
     Indication: INFECTION
     Dosage: 2 G, SINGLE
     Dates: start: 20110121, end: 20110121

REACTIONS (3)
  - DIARRHOEA [None]
  - RASH [None]
  - BURNING SENSATION [None]
